FAERS Safety Report 6968536-7 (Version None)
Quarter: 2010Q3

REPORT INFORMATION
  Report Type: 
  Country: None (occurrence: None)
  Receive Date: 20100907
  Receipt Date: 20100831
  Transmission Date: 20110219
  Serious: Yes (Other)
  Sender: FDA-Public Use
  Company Number: US-PFIZER INC-2010110420

PATIENT
  Sex: Male
  Weight: 90.7 kg

DRUGS (5)
  1. SUTENT [Suspect]
     Indication: METASTATIC RENAL CELL CARCINOMA
     Dosage: 12.5 MG, 3X/DAY AT NIGNT
     Route: 048
     Dates: start: 20090601
  2. ALISKIREN/VALSARTAN [Concomitant]
     Indication: HYPERTENSION
     Dosage: 300/320 MG
  3. NORVASC [Concomitant]
     Indication: HYPERTENSION
     Dosage: 10 MG, DAILY
  4. CRESTOR [Concomitant]
     Indication: HYPERTENSION
     Dosage: 10 MG, 1X/DAY
  5. PROTONIX [Concomitant]
     Dosage: 40 MG

REACTIONS (4)
  - BLOOD THYROID STIMULATING HORMONE INCREASED [None]
  - NICOTINIC ACID DEFICIENCY [None]
  - RASH [None]
  - RASH ERYTHEMATOUS [None]
